FAERS Safety Report 5145423-0 (Version None)
Quarter: 2006Q4

REPORT INFORMATION
  Report Type: 
  Country: None (occurrence: None)
  Receive Date: 20061101
  Receipt Date: 20061012
  Transmission Date: 20070319
  Serious: Yes (Life-Threatening, Other)
  Sender: FDA-Public Use
  Company Number: DE200610002634

PATIENT
  Age: 50 Year
  Sex: Female

DRUGS (5)
  1. CYMBALTA [Suspect]
     Indication: ADJUSTMENT DISORDER WITH DEPRESSED MOOD
     Dosage: 60 MG, DAILY (1/D), ORAL
     Route: 048
     Dates: start: 20060101, end: 20061012
  2. AMANTADINE HCL [Concomitant]
  3. L-DOPA (LEVODOPA) [Concomitant]
  4. ROPINIROLE (ROPINIROLE) [Concomitant]
  5. AMITRIPTYLINE HCL [Concomitant]

REACTIONS (1)
  - HYPERTENSION [None]
